FAERS Safety Report 9665710 (Version 1)
Quarter: 2013Q4

REPORT INFORMATION
  Report Type: Spontaneous
  Country: US (occurrence: None)
  Receive Date: 20131031
  Receipt Date: 20131031
  Transmission Date: 20140711
  Serious: Yes (Hospitalization, Other)
  Sender: FDA-Public Use
  Company Number: None

PATIENT
  Age: 42 Year
  Sex: Male
  Weight: 121.11 kg

DRUGS (5)
  1. JANUMET XR [Suspect]
     Indication: TYPE 2 DIABETES MELLITUS
     Dosage: 1 PILL QD ORAL
     Route: 048
     Dates: end: 20131030
  2. DUONEB [Concomitant]
  3. DULERA [Concomitant]
  4. SYMBICORT [Concomitant]
  5. NEXIUM [Concomitant]

REACTIONS (2)
  - Pancreatitis [None]
  - Cholelithiasis [None]
